APPROVED DRUG PRODUCT: COACTIN
Active Ingredient: AMDINOCILLIN
Strength: 1GM/VIAL
Dosage Form/Route: INJECTABLE;INJECTION
Application: N050565 | Product #003
Applicant: HOFFMANN LA ROCHE INC
Approved: Dec 21, 1984 | RLD: No | RS: No | Type: DISCN